FAERS Safety Report 10257451 (Version 1)
Quarter: 2014Q2

REPORT INFORMATION
  Report Type: Spontaneous
  Country: IT (occurrence: None)
  Receive Date: 20140620
  Receipt Date: 20140620
  Transmission Date: 20141212
  Serious: Yes (Hospitalization, Other)
  Sender: FDA-Public Use
  Company Number: 2014AP003418

PATIENT
  Age: 46 Year
  Sex: Female

DRUGS (2)
  1. CITALOPRAM [Suspect]
     Indication: DERMATILLOMANIA
     Route: 048
     Dates: start: 20140515, end: 20140515
  2. ZOLPIDEM [Suspect]
     Indication: INTENTIONAL SELF-INJURY
     Route: 048
     Dates: start: 20140515, end: 20140515

REACTIONS (4)
  - Drug abuse [None]
  - Intentional self-injury [None]
  - Sopor [None]
  - White blood cell count increased [None]
